FAERS Safety Report 9040762 (Version 1)
Quarter: 2013Q1

REPORT INFORMATION
  Report Type: Spontaneous
  Country: US (occurrence: US)
  Receive Date: 20130129
  Receipt Date: 20130129
  Transmission Date: 20140127
  Serious: Yes (Hospitalization, Other)
  Sender: FDA-Public Use
  Company Number: US-JNJFOC-20130111675

PATIENT
  Age: 69 Year
  Sex: Male
  Weight: 177.3 kg

DRUGS (25)
  1. ULTRAM [Suspect]
     Indication: ARTHRALGIA
     Dosage: 1-2 TABLETS AS NEEDED, TWICE A DAY.??FROM 25-JUL-2012 TO 28-JUL-2012
     Route: 048
  2. ULTRAM [Suspect]
     Indication: VASCULITIS
     Dosage: 1-2 TABLETS AS NEEDED, TWICE A DAY.??FROM 25-JUL-2012 TO 28-JUL-2012
     Route: 048
  3. ULTRAM [Suspect]
     Indication: NEUROPATHY PERIPHERAL
     Dosage: 1-2 TABLETS AS NEEDED, TWICE A DAY.??FROM 25-JUL-2012 TO 28-JUL-2012
     Route: 048
  4. IBUPROFEN [Suspect]
     Indication: RHEUMATOID ARTHRITIS
     Dosage: THRICE DAILY
     Route: 048
     Dates: start: 20100527, end: 20111220
  5. IBUPROFEN [Suspect]
     Indication: OSTEOARTHRITIS
     Dosage: THRICE DAILY
     Route: 048
     Dates: start: 20100527, end: 20111220
  6. CELECOXIB [Suspect]
     Indication: RHEUMATOID ARTHRITIS
     Dosage: THRICE DAILY
     Route: 048
     Dates: start: 20100527, end: 20111220
  7. CELECOXIB [Suspect]
     Indication: OSTEOARTHRITIS
     Dosage: THRICE DAILY
     Route: 048
     Dates: start: 20100527, end: 20111220
  8. NEURONTIN [Suspect]
     Indication: NEUROPATHY PERIPHERAL
     Dosage: THRICE A DAY
     Route: 048
     Dates: start: 20120622, end: 20120728
  9. NEURONTIN [Suspect]
     Indication: DIABETIC NEUROPATHY
     Dosage: THRICE A DAY
     Route: 048
     Dates: start: 20120622, end: 20120728
  10. LYRICA [Suspect]
     Indication: DIABETIC NEUROPATHY
     Dosage: TWICE A DAY.??24-JUL-2012 TO 25-JUL-2012
     Route: 048
  11. NAPROXEN [Suspect]
     Indication: RHEUMATOID ARTHRITIS
     Dosage: THRICE DAILY
     Route: 048
     Dates: start: 20100527, end: 20111220
  12. NAPROXEN [Suspect]
     Indication: OSTEOARTHRITIS
     Dosage: THRICE DAILY
     Route: 048
     Dates: start: 20100527, end: 20111220
  13. PLACEBO [Suspect]
     Indication: RHEUMATOID ARTHRITIS
     Dosage: THRICE DAILY
     Route: 048
     Dates: start: 20100527, end: 20111220
  14. PLACEBO [Suspect]
     Indication: OSTEOARTHRITIS
     Dosage: THRICE DAILY
     Route: 048
     Dates: start: 20100527, end: 20111220
  15. NEXIUM [Concomitant]
     Indication: GASTROINTESTINAL DISORDER THERAPY
     Dosage: 20 MG ONCE
     Route: 048
     Dates: start: 20100721, end: 20111220
  16. SINGULAIR [Concomitant]
     Indication: RHINITIS ALLERGIC
     Route: 065
     Dates: start: 20100423
  17. ALBUTEROL [Concomitant]
     Indication: CHRONIC OBSTRUCTIVE PULMONARY DISEASE
     Route: 065
     Dates: start: 20100423
  18. AMIODARONE [Concomitant]
     Indication: TACHYCARDIA
     Route: 065
     Dates: start: 20100423
  19. SYMBICORT [Concomitant]
     Indication: CHRONIC OBSTRUCTIVE PULMONARY DISEASE
     Route: 065
     Dates: start: 20110128
  20. PLETAL [Concomitant]
     Indication: CORONARY ARTERY DISEASE
     Route: 065
     Dates: start: 20120524, end: 20120728
  21. HYTRIN [Concomitant]
     Indication: HYPERTENSION
     Route: 065
     Dates: start: 20120524
  22. METOPROLOL [Concomitant]
     Indication: TACHYCARDIA
     Route: 065
     Dates: start: 20120530
  23. PERCOCET [Concomitant]
     Indication: ARTHRALGIA
     Dosage: 10/325 MG TWICE DAILY
     Route: 065
     Dates: start: 20120613, end: 20120724
  24. PERCOCET [Concomitant]
     Indication: VASCULITIS
     Dosage: 10/325 MG TWICE DAILY
     Route: 065
     Dates: start: 20120613, end: 20120724
  25. PERCOCET [Concomitant]
     Indication: NEUROPATHY PERIPHERAL
     Dosage: 10/325 MG TWICE DAILY
     Route: 065
     Dates: start: 20120613, end: 20120724

REACTIONS (2)
  - Asthenia [Recovered/Resolved]
  - Dehydration [Unknown]
